FAERS Safety Report 11656806 (Version 1)
Quarter: 2015Q4

REPORT INFORMATION
  Report Type: Spontaneous
  Country: TR (occurrence: TR)
  Receive Date: 20151023
  Receipt Date: 20151023
  Transmission Date: 20160304
  Serious: Yes (Hospitalization, Other)
  Sender: FDA-Public Use
  Company Number: TR-WATSON-2015-22272

PATIENT
  Age: 35 Year
  Sex: Female

DRUGS (2)
  1. ERGOTAMINE [Suspect]
     Active Substance: CAFFEINE\ERGOTAMINE\ERGOTAMINE TARTRATE
     Indication: MIGRAINE
     Dosage: UNK
     Route: 065
  2. AZITHROMYCIN [Interacting]
     Active Substance: AZITHROMYCIN ANHYDROUS
     Indication: GENITAL INFECTION
     Dosage: 1 G, SINGLE
     Route: 065

REACTIONS (3)
  - Vasospasm [Recovered/Resolved]
  - Peripheral ischaemia [Recovered/Resolved]
  - Drug interaction [Recovered/Resolved]
